FAERS Safety Report 23099755 (Version 2)
Quarter: 2023Q4

REPORT INFORMATION
  Report Type: Spontaneous
  Country: DE (occurrence: DE)
  Receive Date: 20231024
  Receipt Date: 20231113
  Transmission Date: 20240109
  Serious: Yes (Other)
  Sender: FDA-Public Use
  Company Number: DE-TAKEDA-2023TUS101208

PATIENT
  Age: 26 Year
  Sex: Female

DRUGS (3)
  1. ENTYVIO [Suspect]
     Active Substance: VEDOLIZUMAB
     Indication: Crohn^s disease
     Dosage: UNK
     Route: 065
  2. ENTYVIO [Suspect]
     Active Substance: VEDOLIZUMAB
     Indication: Crohn^s disease
     Dosage: UNK
     Route: 058
  3. CORTISONE [Concomitant]
     Active Substance: CORTISONE
     Dosage: UNK
     Dates: start: 202212

REACTIONS (15)
  - Syncope [Unknown]
  - Abdominal pain upper [Unknown]
  - Cold sweat [Unknown]
  - Diarrhoea [Unknown]
  - Endometriosis [Unknown]
  - Injection site pain [Unknown]
  - Asthenia [Unknown]
  - Myalgia [Unknown]
  - Seasonal allergy [Unknown]
  - Dust allergy [Unknown]
  - Illness [Unknown]
  - Abdominal pain [Unknown]
  - Vomiting [Unknown]
  - Chills [Unknown]
  - Nausea [Unknown]
